FAERS Safety Report 13272594 (Version 1)
Quarter: 2017Q1

REPORT INFORMATION
  Report Type: Spontaneous
  Country: US (occurrence: US)
  Receive Date: 20170225
  Receipt Date: 20170225
  Transmission Date: 20170428
  Serious: Yes (Disabling)
  Sender: FDA-Public Use
  Company Number: None

PATIENT
  Age: 69 Year
  Sex: Female
  Weight: 69.75 kg

DRUGS (7)
  1. CRANBERRY. [Concomitant]
     Active Substance: CRANBERRY
  2. MAGNESIUM [Concomitant]
     Active Substance: MAGNESIUM
  3. FISH OIL [Concomitant]
     Active Substance: FISH OIL
  4. CIPRO [Suspect]
     Active Substance: CIPROFLOXACIN HYDROCHLORIDE
     Indication: CYSTITIS
     Route: 048
     Dates: start: 20160906, end: 20160913
  5. VITAMIN D [Concomitant]
     Active Substance: CHOLECALCIFEROL
  6. SYNTHROID [Concomitant]
     Active Substance: LEVOTHYROXINE SODIUM
  7. OSTEO BI FLEX [Concomitant]

REACTIONS (6)
  - Muscle disorder [None]
  - Myalgia [None]
  - Tendon disorder [None]
  - Muscle tightness [None]
  - Muscle spasms [None]
  - Movement disorder [None]

NARRATIVE: CASE EVENT DATE: 20161022
